FAERS Safety Report 9487109 (Version 1)
Quarter: 2013Q3

REPORT INFORMATION
  Report Type: Spontaneous
  Country: CN (occurrence: None)
  Receive Date: 20130823
  Receipt Date: 20130823
  Transmission Date: 20140515
  Serious: Yes (Other)
  Sender: FDA-Public Use
  Company Number: SYM-2013-08994

PATIENT
  Sex: 0

DRUGS (3)
  1. FLUOROURACIL (FLUOROURACIL) (FLUOROURACIL) [Suspect]
     Indication: NASOPHARYNGEAL CANCER
  2. CISPLATIN (CISPLATIN) (SOLUTION FOR INFUSION) (CISPLATIN) [Suspect]
     Indication: NASOPHARYNGEAL CANCER
     Dosage: EVERY THREE WEEKS
  3. SORAFENIB (SORAFENIB) (SORAFENIB) [Suspect]
     Indication: NASOPHARYNGEAL CANCER
     Dosage: 2 IN 1 D
     Route: 048

REACTIONS (1)
  - Vomiting [None]
